FAERS Safety Report 4468077-5 (Version None)
Quarter: 2004Q4

REPORT INFORMATION
  Report Type: 
  Country: None (occurrence: None)
  Receive Date: 20041004
  Receipt Date: 20041004
  Transmission Date: 20050328
  Serious: Yes (Other)
  Sender: FDA-Public Use
  Company Number: None

PATIENT
  Age: 47 Year
  Sex: Male
  Weight: 88.9 kg

DRUGS (9)
  1. SIMVASTATIN [Suspect]
  2. BENZONATATE [Concomitant]
  3. ALBUTEROL [Concomitant]
  4. BECLOMETHASONE DIPROPIONATE [Concomitant]
  5. PSEUDOEPHEDRINE HCL [Concomitant]
  6. TRIAMCINOLONE [Concomitant]
  7. FEXOFENADINE HCL [Concomitant]
  8. IPATROPIUM BROMIDE [Concomitant]
  9. SIMVASTATIN [Concomitant]

REACTIONS (1)
  - MYALGIA [None]
